FAERS Safety Report 5518518-7 (Version None)
Quarter: 2007Q4

REPORT INFORMATION
  Report Type: 
  Country: None (occurrence: None)
  Receive Date: 20071115
  Receipt Date: 20071112
  Transmission Date: 20080405
  Serious: Yes (Hospitalization)
  Sender: FDA-Public Use
  Company Number: US-BRISTOL-MYERS SQUIBB COMPANY-13979117

PATIENT
  Age: 51 Year
  Sex: Male
  Weight: 64 kg

DRUGS (3)
  1. CETUXIMAB [Suspect]
     Indication: SQUAMOUS CELL CARCINOMA
     Dates: start: 20071106, end: 20071106
  2. CISPLATIN [Suspect]
     Indication: SQUAMOUS CELL CARCINOMA
     Dosage: LAST ADMIONISTERED DATE - 16/10/2007
     Dates: start: 20071016, end: 20071016
  3. RADIATION THERAPY [Suspect]
     Indication: SQUAMOUS CELL CARCINOMA
     Dosage: 1 DOSAGE FORM - 68.4GY
     Dates: start: 20071106, end: 20071107

REACTIONS (4)
  - DEEP VEIN THROMBOSIS [None]
  - HYPOXIA [None]
  - PULMONARY EMBOLISM [None]
  - VOMITING [None]
